FAERS Safety Report 25981638 (Version 1)
Quarter: 2025Q4

REPORT INFORMATION
  Report Type: Spontaneous
  Country: JP (occurrence: JP)
  Receive Date: 20251031
  Receipt Date: 20251031
  Transmission Date: 20260119
  Serious: Yes (Other)
  Sender: ABBVIE
  Company Number: JP-ABBVIE-6518808

PATIENT
  Sex: Female

DRUGS (1)
  1. SKYRIZI [Suspect]
     Active Substance: RISANKIZUMAB-RZAA
     Indication: SAPHO syndrome
     Route: 058
     Dates: start: 2024

REACTIONS (2)
  - Joint arthroplasty [Unknown]
  - Tinea infection [Not Recovered/Not Resolved]
